FAERS Safety Report 11484561 (Version 1)
Quarter: 2015Q3

REPORT INFORMATION
  Report Type: Spontaneous
  Country: US (occurrence: None)
  Receive Date: 20150904
  Receipt Date: 20150904
  Transmission Date: 20151125
  Serious: Yes (Other)
  Sender: FDA-Public Use
  Company Number: 1000078816

PATIENT
  Age: 40 Year
  Sex: Male

DRUGS (3)
  1. LOSARTAN. [Concomitant]
     Active Substance: LOSARTAN
  2. LEXAPRO [Suspect]
     Active Substance: ESCITALOPRAM OXALATE
     Indication: DEPRESSION
     Dosage: 10 MG 1 IN 1 D?10 YEAARS AGO
     Route: 048
     Dates: start: 2005
  3. LEXAPRO [Suspect]
     Active Substance: ESCITALOPRAM OXALATE
     Indication: ANXIETY
     Dosage: 10 MG 1 IN 1 D?10 YEAARS AGO
     Route: 048
     Dates: start: 2005

REACTIONS (6)
  - Suicidal ideation [None]
  - Insomnia [None]
  - Drug ineffective [None]
  - Anxiety [None]
  - Decreased appetite [None]
  - Depression [None]

NARRATIVE: CASE EVENT DATE: 201507
